FAERS Safety Report 5937869-5 (Version None)
Quarter: 2008Q4

REPORT INFORMATION
  Report Type: 
  Country: None (occurrence: None)
  Receive Date: 20081029
  Receipt Date: 20081017
  Transmission Date: 20090506
  Serious: Yes (Other)
  Sender: FDA-Public Use
  Company Number: VAL_00126_2008

PATIENT
  Age: 10 Year
  Sex: Female

DRUGS (1)
  1. CARBAMAZEPINE [Suspect]
     Indication: EPILEPSY
     Dosage: DF

REACTIONS (15)
  - CONJUNCTIVITIS [None]
  - DRUG HYPERSENSITIVITY [None]
  - DRUG TOXICITY [None]
  - HEPATIC ENZYME ABNORMAL [None]
  - HEPATOMEGALY [None]
  - LYMPHADENITIS [None]
  - NEUTROPHILIA [None]
  - OEDEMA PERIPHERAL [None]
  - OSTEOMYELITIS [None]
  - OSTEONECROSIS [None]
  - STAPHYLOCOCCAL ABSCESS [None]
  - STOMATITIS [None]
  - TACHYCARDIA [None]
  - TENDONITIS [None]
  - TRANSAMINASES INCREASED [None]
